FAERS Safety Report 15476716 (Version 2)
Quarter: 2018Q4

REPORT INFORMATION
  Report Type: Spontaneous
  Country: JP (occurrence: JP)
  Receive Date: 20181009
  Receipt Date: 20181009
  Transmission Date: 20190205
  Serious: No
  Sender: FDA-Public Use
  Company Number: JP-LUPIN PHARMACEUTICALS INC.-2018-05725

PATIENT
  Age: 79 Year
  Sex: Male
  Weight: 47.4 kg

DRUGS (11)
  1. MORPHINE [Interacting]
     Active Substance: MORPHINE
     Indication: CANCER PAIN
     Dosage: 5 UNK, QD
     Route: 065
  2. ACETAMINOPHEN. [Concomitant]
     Active Substance: ACETAMINOPHEN
     Indication: CANCER PAIN
     Dosage: UNK
     Route: 065
  3. TRAMADOL HYDROCHLORIDE. [Concomitant]
     Active Substance: TRAMADOL HYDROCHLORIDE
     Indication: CANCER PAIN
     Dosage: 37.5 MG, UNK
     Route: 065
  4. TRAMADOL HYDROCHLORIDE. [Concomitant]
     Active Substance: TRAMADOL HYDROCHLORIDE
     Dosage: 37.5 MG, UNK
     Route: 065
  5. ACETAMINOPHEN. [Concomitant]
     Active Substance: ACETAMINOPHEN
     Dosage: 325 MG, 6 TABLETS DAILY
     Route: 065
  6. NOVAMIN (PROCHLORPERAZINE) [Interacting]
     Active Substance: PROCHLORPERAZINE
     Dosage: 5 MG, TID
     Route: 065
  7. OLANZAPINE. [Interacting]
     Active Substance: OLANZAPINE
     Indication: PRODUCT USED FOR UNKNOWN INDICATION
     Dosage: 5 MG, QD, USED BEFORE SLEEPING
     Route: 065
  8. OXYCODONE [Suspect]
     Active Substance: OXYCODONE
     Indication: CANCER PAIN
     Dosage: 5 MG, BID
     Route: 065
  9. OXYCODONE [Interacting]
     Active Substance: OXYCODONE
     Dosage: 10 MG, BID
     Route: 065
  10. ZOPICLONE [Interacting]
     Active Substance: ZOPICLONE
     Indication: PRODUCT USED FOR UNKNOWN INDICATION
     Dosage: 7.5 MG, BEF ORE SLEEPING
     Route: 065
  11. OXYCODONE [Interacting]
     Active Substance: OXYCODONE
     Dosage: 5 MG, BID
     Route: 065

REACTIONS (3)
  - Nausea [Recovered/Resolved]
  - Drug interaction [Unknown]
  - Photophobia [Recovered/Resolved]
